FAERS Safety Report 6743098-8 (Version None)
Quarter: 2010Q2

REPORT INFORMATION
  Report Type: 
  Country: None (occurrence: None)
  Receive Date: 20100527
  Receipt Date: 20100521
  Transmission Date: 20101027
  Serious: Yes (Death)
  Sender: FDA-Public Use
  Company Number: FR-JNJFOC-20100306515

PATIENT
  Sex: Female
  Weight: 66 kg

DRUGS (5)
  1. RISPERDAL [Suspect]
     Indication: DELIRIUM
     Route: 048
  2. DEPAKENE [Suspect]
     Indication: AGITATION
     Route: 048
  3. VALIUM [Suspect]
     Indication: ANXIETY
     Route: 048
  4. TELFAST [Concomitant]
     Indication: HOUSE DUST ALLERGY
     Route: 065
  5. CLOPIXOL [Concomitant]
     Route: 065

REACTIONS (21)
  - AORTIC ARTERIOSCLEROSIS [None]
  - BRONCHITIS [None]
  - CARDIOMYOPATHY [None]
  - COUGH [None]
  - ECZEMA [None]
  - HAEMORRHAGE SUBCUTANEOUS [None]
  - HEPATIC CONGESTION [None]
  - HEPATIC STEATOSIS [None]
  - INTERSTITIAL LUNG DISEASE [None]
  - INTESTINAL CONGESTION [None]
  - LARYNGEAL HAEMORRHAGE [None]
  - MENINGEAL DISORDER [None]
  - OBSESSIVE-COMPULSIVE DISORDER [None]
  - OFF LABEL USE [None]
  - PANCREATIC DISORDER [None]
  - PLEURAL HAEMORRHAGE [None]
  - PULMONARY HAEMORRHAGE [None]
  - PULMONARY OEDEMA [None]
  - SCRATCH [None]
  - SEDATION [None]
  - SUDDEN DEATH [None]
